FAERS Safety Report 23180477 (Version 1)
Quarter: 2023Q4

REPORT INFORMATION
  Report Type: Spontaneous
  Country: IT (occurrence: IT)
  Receive Date: 20231114
  Receipt Date: 20231114
  Transmission Date: 20240110
  Serious: Yes (Other)
  Sender: FDA-Public Use
  Company Number: None

PATIENT

DRUGS (15)
  1. CISPLATIN [Suspect]
     Active Substance: CISPLATIN
     Indication: Metastases to lung
     Dosage: 25 MILLIGRAM
     Route: 042
     Dates: start: 20230801, end: 20231002
  2. CISPLATIN [Suspect]
     Active Substance: CISPLATIN
     Indication: Malignant neoplasm of ampulla of Vater
  3. GEMCITABINE [Suspect]
     Active Substance: GEMCITABINE
     Indication: Metastases to lung
     Dosage: 1000 MILLIGRAM
     Route: 042
     Dates: start: 20230801, end: 20231002
  4. GEMCITABINE [Suspect]
     Active Substance: GEMCITABINE
     Indication: Malignant neoplasm of ampulla of Vater
  5. CREON [Concomitant]
     Active Substance: PANCRELIPASE AMYLASE\PANCRELIPASE LIPASE\PANCRELIPASE PROTEASE
     Indication: Pancreatic failure
     Dosage: UNK
     Route: 048
     Dates: start: 2023
  6. DEXAMETHASONE [Concomitant]
     Active Substance: DEXAMETHASONE
     Indication: Steroid therapy
     Dosage: UNK
     Route: 042
     Dates: start: 20230801, end: 20231016
  7. DEXAMETHASONE [Concomitant]
     Active Substance: DEXAMETHASONE
     Indication: Chemotherapy side effect prophylaxis
  8. GLUTATIONE [Concomitant]
     Indication: Chemotherapy side effect prophylaxis
     Dosage: UNK
     Route: 042
     Dates: start: 20230801, end: 20231016
  9. GLUTATIONE [Concomitant]
     Indication: Antioxidant therapy
  10. IMFINZI [Concomitant]
     Active Substance: DURVALUMAB
     Indication: Malignant neoplasm of ampulla of Vater
     Dosage: UNK
     Route: 042
     Dates: start: 20230801, end: 20231016
  11. IMFINZI [Concomitant]
     Active Substance: DURVALUMAB
     Indication: Metastases to lung
  12. METOCLOPRAMIDE [Concomitant]
     Active Substance: METOCLOPRAMIDE
     Indication: Nausea
     Dosage: UNK
     Route: 048
     Dates: start: 20230801, end: 20231016
  13. MICARDIS [Concomitant]
     Active Substance: TELMISARTAN
     Indication: Hypertension
     Dosage: UNK
     Route: 048
     Dates: start: 2023
  14. OMEPRAZOLE [Concomitant]
     Active Substance: OMEPRAZOLE
     Indication: Gastrooesophageal reflux disease
     Dosage: UNK
     Route: 048
     Dates: start: 2023
  15. PIROXICAM [Concomitant]
     Active Substance: PIROXICAM
     Indication: Gastrooesophageal reflux disease
     Dosage: UNK
     Route: 048
     Dates: start: 2023

REACTIONS (6)
  - Oral herpes [Recovering/Resolving]
  - Dyspnoea [Not Recovered/Not Resolved]
  - Hypotensive crisis [Not Recovered/Not Resolved]
  - Chest pain [Not Recovered/Not Resolved]
  - Suffocation feeling [Not Recovered/Not Resolved]
  - Fatigue [Not Recovered/Not Resolved]

NARRATIVE: CASE EVENT DATE: 20231009
